FAERS Safety Report 9749739 (Version 1)
Quarter: 2013Q4

REPORT INFORMATION
  Report Type: Spontaneous
  Country: US (occurrence: US)
  Receive Date: 20131212
  Receipt Date: 20131212
  Transmission Date: 20140711
  Serious: No
  Sender: FDA-Public Use
  Company Number: US-TEVA-395362USA

PATIENT
  Age: 36 Year
  Sex: Female
  Weight: 78.09 kg

DRUGS (4)
  1. PARAGARD 380A [Suspect]
     Indication: CONTRACEPTION
     Route: 015
     Dates: start: 20130226, end: 20130325
  2. WELLBUTRIN [Concomitant]
     Indication: DEPRESSION
  3. VITAMIN C [Concomitant]
     Indication: NUTRITIONAL SUPPLEMENTATION
  4. MULTIVITAMIN [Concomitant]
     Indication: NUTRITIONAL SUPPLEMENTATION

REACTIONS (3)
  - Menorrhagia [Unknown]
  - Uterine spasm [Unknown]
  - Device expulsion [Recovered/Resolved]
